FAERS Safety Report 13698197 (Version 2)
Quarter: 2017Q3

REPORT INFORMATION
  Report Type: Spontaneous
  Country: US (occurrence: US)
  Receive Date: 20170628
  Receipt Date: 20170921
  Transmission Date: 20171127
  Serious: Yes (Death)
  Sender: FDA-Public Use
  Company Number: US-VIFOR (INTERNATIONAL) INC.-VIT-2017-06926

PATIENT
  Age: 41 Year
  Sex: Male

DRUGS (12)
  1. ALLOPURINOL. [Concomitant]
     Active Substance: ALLOPURINOL
  2. HYDRALAZINE HYDROCHLORIDE. [Concomitant]
     Active Substance: HYDRALAZINE HYDROCHLORIDE
  3. COLCRYS [Concomitant]
     Active Substance: COLCHICINE
  4. ROCALTROL [Concomitant]
     Active Substance: CALCITRIOL
  5. VITAMIN D [Concomitant]
     Active Substance: CHOLECALCIFEROL
  6. RENVELA [Concomitant]
     Active Substance: SEVELAMER CARBONATE
  7. FERRIPROX [Concomitant]
     Active Substance: DEFERIPRONE
  8. SODIUM BICARBONATE. [Concomitant]
     Active Substance: SODIUM BICARBONATE
  9. CORTAID MAXIMUM STRENGTH [Concomitant]
     Active Substance: HYDROCORTISONE
  10. VICODIN [Concomitant]
     Active Substance: ACETAMINOPHEN\HYDROCODONE BITARTRATE
  11. VELTASSA [Suspect]
     Active Substance: PATIROMER
     Indication: HYPERKALAEMIA
     Route: 048
     Dates: start: 20160112, end: 20170621
  12. COREG [Concomitant]
     Active Substance: CARVEDILOL

REACTIONS (1)
  - Death [Fatal]

NARRATIVE: CASE EVENT DATE: 20170621
